FAERS Safety Report 25423997 (Version 2)
Quarter: 2025Q2

REPORT INFORMATION
  Report Type: Report from Study
  Country: US (occurrence: US)
  Receive Date: 20250611
  Receipt Date: 20250624
  Transmission Date: 20250717
  Serious: Yes (Death, Hospitalization)
  Sender: UCB
  Company Number: US-UCBSA-2025005149

PATIENT
  Age: 9 Year
  Sex: Female
  Weight: 30.4 kg

DRUGS (4)
  1. FINTEPLA [Suspect]
     Active Substance: FENFLURAMINE
     Indication: Lennox-Gastaut syndrome
     Dosage: 3 MILLILITER, 2X/DAY (BID)
     Dates: start: 20240426
  2. FINTEPLA [Suspect]
     Active Substance: FENFLURAMINE
     Dosage: 3.5 MILLILITER, 2X/DAY (BID)
  3. FINTEPLA [Suspect]
     Active Substance: FENFLURAMINE
  4. FINTEPLA [Suspect]
     Active Substance: FENFLURAMINE
     Dosage: 4 MILLILITER, 2X/DAY (BID)

REACTIONS (4)
  - Seizure [Fatal]
  - Bacterial infection [Unknown]
  - General physical health deterioration [Fatal]
  - Illness [Not Recovered/Not Resolved]

NARRATIVE: CASE EVENT DATE: 20250116
